FAERS Safety Report 7572242-8 (Version None)
Quarter: 2011Q2

REPORT INFORMATION
  Report Type: 
  Country: None (occurrence: None)
  Receive Date: 20110624
  Receipt Date: 20110613
  Transmission Date: 20111010
  Serious: Yes (Other)
  Sender: FDA-Public Use
  Company Number: PHHY2010US40266

PATIENT
  Sex: Male

DRUGS (2)
  1. GLEEVEC [Suspect]
     Dosage: 2 OR 3 PILLS PER DAY
  2. GLEEVEC [Suspect]
     Indication: CHRONIC MYELOID LEUKAEMIA
     Dosage: 6 PILLS A DAY
     Dates: start: 20010101

REACTIONS (7)
  - BLINDNESS [None]
  - DENTAL CARIES [None]
  - LUNG DISORDER [None]
  - FULL BLOOD COUNT INCREASED [None]
  - GENERAL PHYSICAL HEALTH DETERIORATION [None]
  - ASTHENIA [None]
  - DRUG INEFFECTIVE [None]
